FAERS Safety Report 6734801-1 (Version None)
Quarter: 2010Q2

REPORT INFORMATION
  Report Type: 
  Country: None (occurrence: None)
  Receive Date: 20100521
  Receipt Date: 20100512
  Transmission Date: 20101027
  Serious: Yes (Hospitalization)
  Sender: FDA-Public Use
  Company Number: US-BIOGENIDEC-2010BI015793

PATIENT
  Age: 50 Year
  Sex: Female
  Weight: 83 kg

DRUGS (4)
  1. AVONEX [Suspect]
     Indication: MULTIPLE SCLEROSIS
     Route: 030
     Dates: start: 20030101
  2. AVONEX [Suspect]
     Route: 030
     Dates: start: 19970601, end: 20030101
  3. MULTI-VITAMINS [Concomitant]
  4. VITAMIN D3 [Concomitant]
     Indication: MULTIPLE SCLEROSIS

REACTIONS (9)
  - BLOOD CHOLESTEROL INCREASED [None]
  - FALL [None]
  - GASTROOESOPHAGEAL REFLUX DISEASE [None]
  - HYPERTENSION [None]
  - HYSTERECTOMY [None]
  - INSOMNIA [None]
  - POOR PERIPHERAL CIRCULATION [None]
  - RENAL INJURY [None]
  - URINARY INCONTINENCE [None]
